FAERS Safety Report 16875099 (Version 5)
Quarter: 2019Q4

REPORT INFORMATION
  Report Type: Spontaneous
  Country: US (occurrence: US)
  Receive Date: 20191001
  Receipt Date: 20191112
  Transmission Date: 20200122
  Serious: Yes (Death, Hospitalization)
  Sender: FDA-Public Use
  Company Number: US-ACTELION-A-NJ2019-196184

PATIENT
  Age: 67 Year
  Sex: Male
  Weight: 65.31 kg

DRUGS (4)
  1. WARFARIN [Concomitant]
     Active Substance: WARFARIN
  2. VELETRI [Suspect]
     Active Substance: EPOPROSTENOL
     Indication: PULMONARY ARTERIAL HYPERTENSION
     Dosage: 6 NG/KG, PER MIN
     Route: 042
     Dates: start: 201909
  3. UPTRAVI [Suspect]
     Active Substance: SELEXIPAG
     Indication: PULMONARY ARTERIAL HYPERTENSION
     Dosage: 200 MCG, BID
     Route: 048
     Dates: end: 201909
  4. OPSUMIT [Suspect]
     Active Substance: MACITENTAN
     Indication: PULMONARY ARTERIAL HYPERTENSION
     Dosage: 10 MG, QD
     Route: 048

REACTIONS (9)
  - Musculoskeletal stiffness [Unknown]
  - Nausea [Unknown]
  - Fatigue [Unknown]
  - Death [Fatal]
  - Oedema peripheral [Unknown]
  - Fluid retention [Unknown]
  - Pulmonary hypertension [Unknown]
  - Pain in jaw [Unknown]
  - Asthenia [Unknown]

NARRATIVE: CASE EVENT DATE: 20191028
